FAERS Safety Report 8301445-X (Version None)
Quarter: 2012Q2

REPORT INFORMATION
  Report Type: 
  Country: None (occurrence: None)
  Receive Date: 20120420
  Receipt Date: 20120405
  Transmission Date: 20120825
  Serious: Yes (Hospitalization, Other)
  Sender: FDA-Public Use
  Company Number: FR-ROCHE-674647

PATIENT
  Sex: Female
  Weight: 49.6 kg

DRUGS (7)
  1. VINCRISTINE [Suspect]
     Indication: SARCOMA
     Dosage: FORM: 1.5 MG/M2. TEMPORARILY STOPPED.
     Route: 042
     Dates: start: 20091128, end: 20091204
  2. AVASTIN [Suspect]
     Indication: SARCOMA
     Dosage: FORM REPORTED AS: 7.5 MG/KG. LAST DOSE PRIOR TO SAE 03 FEBUARY 2010.
     Route: 042
  3. DACTINOMYCIN [Suspect]
     Indication: SARCOMA
     Dosage: FORM: 1.5 MG/M2.  THE MOST RECENT DOSE WAS 23 FEBUARY 2010.
     Route: 042
  4. VINCRISTINE [Suspect]
     Route: 042
     Dates: start: 20091211, end: 20100102
  5. DOXORUBICIN HCL [Suspect]
     Indication: SARCOMA
     Dosage: FORM: 30MG/M2. LAST DOSE PRIOR TO SAE: 05 FEBRUARY 2010.
     Route: 042
  6. VINCRISTINE [Suspect]
     Route: 042
  7. IFOSFAMIDE [Suspect]
     Indication: SARCOMA
     Dosage: DOSE FORM: 6G/M2.
     Route: 042

REACTIONS (6)
  - WEIGHT DECREASED [None]
  - ANAEMIA [None]
  - PNEUMOTHORAX [None]
  - FEBRILE NEUTROPENIA [None]
  - VOMITING [None]
  - MUCOSAL INFLAMMATION [None]
